FAERS Safety Report 5060275-5 (Version None)
Quarter: 2006Q3

REPORT INFORMATION
  Report Type: 
  Country: None (occurrence: None)
  Receive Date: 20060720
  Receipt Date: 20060710
  Transmission Date: 20061208
  Serious: Yes (Hospitalization, Other)
  Sender: FDA-Public Use
  Company Number: 2006BH011761

PATIENT
  Age: 5 Month
  Sex: 0

DRUGS (3)
  1. 5 % DEXTROSE AND 0.45% SODIUM CHLORIDE INJECTION IN PLASTIC CONTAINER [Suspect]
     Indication: LAPAROSCOPIC SURGERY
     Dosage: 36 ML;EVERY HR;IV
     Route: 042
  2. SODIUM CHLORIDE [Suspect]
     Indication: LAPAROSCOPIC SURGERY
     Dosage: 100 ML;IV
     Route: 042
  3. MORPHINE [Suspect]
     Indication: LAPAROSCOPIC SURGERY
     Dosage: 9 ML;IV
     Route: 042

REACTIONS (5)
  - BLISTER [None]
  - EMOTIONAL DISTRESS [None]
  - INFUSION SITE OEDEMA [None]
  - NECROSIS [None]
  - SKIN GRAFT [None]
